FAERS Safety Report 17527813 (Version 1)
Quarter: 2020Q1

REPORT INFORMATION
  Report Type: Spontaneous
  Country: FR (occurrence: FR)
  Receive Date: 20200311
  Receipt Date: 20200311
  Transmission Date: 20200409
  Serious: Yes (Hospitalization)
  Sender: FDA-Public Use
  Company Number: FR-TEVA-2020-FR-1199769

PATIENT
  Age: 41 Year
  Sex: Male
  Weight: 98 kg

DRUGS (1)
  1. ACTONEL [Suspect]
     Active Substance: RISEDRONATE SODIUM
     Indication: OSTEOPOROSIS
     Route: 048
     Dates: start: 201910, end: 202001

REACTIONS (1)
  - Tendon rupture [Recovered/Resolved]

NARRATIVE: CASE EVENT DATE: 202001
